FAERS Safety Report 18481523 (Version 2)
Quarter: 2021Q1

REPORT INFORMATION
  Report Type: Spontaneous
  Country: US (occurrence: US)
  Receive Date: 20201109
  Receipt Date: 20210106
  Transmission Date: 20210419
  Serious: No
  Sender: FDA-Public Use
  Company Number: US-PFIZER INC-2019411442

PATIENT
  Age: 74 Year
  Sex: Male
  Weight: 101.6 kg

DRUGS (2)
  1. VYNDAQEL [Suspect]
     Active Substance: TAFAMIDIS MEGLUMINE
     Indication: AMYLOIDOSIS
     Dosage: 80 MG
  2. VYNDAQEL [Suspect]
     Active Substance: TAFAMIDIS MEGLUMINE
     Indication: CARDIOMYOPATHY
     Dosage: 80 MG, DAILY [2 TABS (UNKNOWN DOSE) BY MOUTH TWICE EACH DAY; TWO IN THE MORNING, TWO IN THE MID?DAY]
     Route: 048
     Dates: start: 2019

REACTIONS (8)
  - Anger [Unknown]
  - Off label use [Unknown]
  - Anxiety [Unknown]
  - Crying [Unknown]
  - Irritability [Unknown]
  - Vomiting [Unknown]
  - General physical health deterioration [Unknown]
  - Gait inability [Unknown]

NARRATIVE: CASE EVENT DATE: 2019
